FAERS Safety Report 10043331 (Version 1)
Quarter: 2014Q1

REPORT INFORMATION
  Report Type: Spontaneous
  Country: US (occurrence: None)
  Receive Date: 20140327
  Receipt Date: 20140327
  Transmission Date: 20141002
  Serious: Yes (Other)
  Sender: FDA-Public Use
  Company Number: None

PATIENT
  Age: 12 Year
  Sex: Male
  Weight: 46.27 kg

DRUGS (1)
  1. FOCALINXR [Suspect]
     Indication: ATTENTION DEFICIT/HYPERACTIVITY DISORDER
     Route: 048
     Dates: start: 20140317, end: 20140325

REACTIONS (6)
  - Muscle twitching [None]
  - Tremor [None]
  - Tardive dyskinesia [None]
  - Aphasia [None]
  - Slow speech [None]
  - Abnormal behaviour [None]
